FAERS Safety Report 13445047 (Version 1)
Quarter: 2017Q2

REPORT INFORMATION
  Report Type: Spontaneous
  Country: BR (occurrence: BR)
  Receive Date: 20170414
  Receipt Date: 20170414
  Transmission Date: 20170830
  Serious: Yes (Other)
  Sender: FDA-Public Use
  Company Number: BR-TEVA-758089ROM

PATIENT
  Age: 46 Year
  Sex: Female
  Weight: 73 kg

DRUGS (15)
  1. EFFIENT [Concomitant]
     Active Substance: PRASUGREL HYDROCHLORIDE
  2. ONDANSETRON [Concomitant]
     Active Substance: ONDANSETRON
  3. SOMALGIN [Concomitant]
     Active Substance: ASPIRIN\DIHYDROXYALUMINUM AMINOACETATE ANHYDROUS\MAGNESIUM CARBONATE
  4. PLASIL [Concomitant]
     Active Substance: METOCLOPRAMIDE HYDROCHLORIDE
  5. XELODA [Concomitant]
     Active Substance: CAPECITABINE
  6. TEVAOXALI [Suspect]
     Active Substance: OXALIPLATIN
     Indication: COLON CANCER
     Route: 042
     Dates: start: 20160811
  7. PANTOZOL [Concomitant]
     Active Substance: PANTOPRAZOLE SODIUM
  8. LIPITOR [Concomitant]
     Active Substance: ATORVASTATIN CALCIUM
  9. EUTHYROX [Concomitant]
     Active Substance: LEVOTHYROXINE SODIUM
  10. RIVOTRIL [Concomitant]
     Active Substance: CLONAZEPAM
  11. MODURETIC 5-50 [Concomitant]
     Active Substance: AMILORIDE HYDROCHLORIDE\HYDROCHLOROTHIAZIDE
  12. NATURETTI [Concomitant]
     Active Substance: HERBALS
  13. DEXAMETHASONE. [Concomitant]
     Active Substance: DEXAMETHASONE
  14. VITAMIN D [Concomitant]
     Active Substance: CHOLECALCIFEROL
  15. IMOSEC [Concomitant]
     Active Substance: LOPERAMIDE

REACTIONS (6)
  - Dizziness [Not Recovered/Not Resolved]
  - Flushing [Recovered/Resolved]
  - Dyslalia [Recovered/Resolved]
  - Nausea [Recovered/Resolved]
  - Dyspnoea [Recovered/Resolved]
  - Hyperhidrosis [Recovered/Resolved]

NARRATIVE: CASE EVENT DATE: 20170330
